FAERS Safety Report 20815682 (Version 1)
Quarter: 2022Q2

REPORT INFORMATION
  Report Type: Spontaneous
  Country: US (occurrence: US)
  Receive Date: 20220511
  Receipt Date: 20220511
  Transmission Date: 20220721
  Serious: No
  Sender: FDA-Public Use
  Company Number: US-PFIZER INC-202101699592

PATIENT
  Age: 62 Year
  Sex: Male
  Weight: 117.48 kg

DRUGS (2)
  1. XANAX [Suspect]
     Active Substance: ALPRAZOLAM
     Indication: Panic disorder
     Dosage: 2 MG, 3X/DAY
  2. XANAX [Suspect]
     Active Substance: ALPRAZOLAM
     Dosage: 2 MG, CHEW ONE ONCE IN A WHILE

REACTIONS (6)
  - Taste disorder [Unknown]
  - Product taste abnormal [Unknown]
  - Therapeutic product effect incomplete [Unknown]
  - Intentional product misuse [Unknown]
  - Off label use [Unknown]
  - Product use issue [Unknown]
